FAERS Safety Report 5911538-X (Version None)
Quarter: 2008Q4

REPORT INFORMATION
  Report Type: 
  Country: None (occurrence: None)
  Receive Date: 20081003
  Receipt Date: 20080922
  Transmission Date: 20090506
  Serious: Yes (Other)
  Sender: FDA-Public Use
  Company Number: 2008-02857

PATIENT
  Age: 71 Year
  Sex: Male
  Weight: 61 kg

DRUGS (11)
  1. VELCADE [Suspect]
     Indication: MULTIPLE MYELOMA
     Dosage: 1.3 MG/M2,   IV BOLUS
     Route: 040
     Dates: start: 20080730, end: 20080730
  2. DEXAMETHASONE [Concomitant]
  3. VANCOMYCIN [Concomitant]
  4. VERSED [Concomitant]
  5. METOPROLOL TARTRATE [Concomitant]
  6. HEPARIN [Concomitant]
  7. FENTANYL-100 [Concomitant]
  8. NEXIUM [Concomitant]
  9. ATORVASTATIN CALCIUM [Concomitant]
  10. ASPIRIN [Concomitant]
  11. ALLOPURINOL [Concomitant]

REACTIONS (3)
  - ACCIDENTAL OVERDOSE [None]
  - DYSPNOEA [None]
  - HYPOTENSION [None]
